FAERS Safety Report 5953439-7 (Version None)
Quarter: 2008Q4

REPORT INFORMATION
  Report Type: 
  Country: None (occurrence: None)
  Receive Date: 20081114
  Receipt Date: 20081103
  Transmission Date: 20090506
  Serious: Yes (Death)
  Sender: FDA-Public Use
  Company Number: US-JNJFOC-20081101479

PATIENT
  Sex: Male

DRUGS (5)
  1. ORTHO EVRA [Suspect]
     Indication: DRUG EXPOSURE DURING PREGNANCY
  2. DARVOCET [Suspect]
     Indication: DRUG USE FOR UNKNOWN INDICATION
  3. WELLBUTRIN [Concomitant]
  4. CARAFATE [Concomitant]
  5. PRILOSEC [Concomitant]

REACTIONS (2)
  - HEPATIC NECROSIS [None]
  - TRISOMY 13 [None]
